FAERS Safety Report 12937438 (Version 1)
Quarter: 2016Q4

REPORT INFORMATION
  Report Type: Spontaneous
  Country: US (occurrence: US)
  Receive Date: 20161114
  Receipt Date: 20161114
  Transmission Date: 20170207
  Serious: Yes (Other)
  Sender: FDA-Public Use
  Company Number: US-JNJFOC-20161113077

PATIENT
  Age: 74 Year
  Sex: Male

DRUGS (9)
  1. ALLOPURINOL. [Concomitant]
     Active Substance: ALLOPURINOL
  2. LIPITOR [Concomitant]
     Active Substance: ATORVASTATIN CALCIUM
  3. IMBRUVICA [Suspect]
     Active Substance: IBRUTINIB
     Indication: PRODUCT USED FOR UNKNOWN INDICATION
     Route: 048
     Dates: start: 20150821, end: 2016
  4. LISINOPRIL. [Concomitant]
     Active Substance: LISINOPRIL
  5. XARELTO [Concomitant]
     Active Substance: RIVAROXABAN
  6. CETIRIZINE [Concomitant]
     Active Substance: CETIRIZINE HYDROCHLORIDE
  7. GLIMEPIRIDE. [Concomitant]
     Active Substance: GLIMEPIRIDE
  8. ATENOLOL. [Concomitant]
     Active Substance: ATENOLOL
  9. METFORMIN [Concomitant]
     Active Substance: METFORMIN HYDROCHLORIDE

REACTIONS (1)
  - Cerebrovascular accident [Unknown]

NARRATIVE: CASE EVENT DATE: 20161015
